FAERS Safety Report 4279985-2 (Version None)
Quarter: 2004Q1

REPORT INFORMATION
  Report Type: 
  Country: None (occurrence: None)
  Receive Date: 20040126
  Receipt Date: 20040114
  Transmission Date: 20041129
  Serious: No
  Sender: FDA-Public Use
  Company Number: 2004AP00230

PATIENT
  Age: 62 Year
  Sex: Female

DRUGS (6)
  1. IRESSA [Suspect]
     Indication: LUNG NEOPLASM MALIGNANT
     Dosage: 250 MG DAILY PO
     Route: 048
     Dates: start: 20021101
  2. CISPLATIN [Concomitant]
  3. UFT [Concomitant]
  4. GEMZAR [Concomitant]
  5. NAVELBINE [Concomitant]
  6. RADIOTHERAPY [Concomitant]

REACTIONS (1)
  - LEUKOENCEPHALOPATHY [None]
